FAERS Safety Report 8530624-1 (Version None)
Quarter: 2012Q3

REPORT INFORMATION
  Report Type: 
  Country: None (occurrence: None)
  Receive Date: 20120723
  Receipt Date: 20120718
  Transmission Date: 20120928
  Serious: Yes (Life-Threatening, Hospitalization, Other)
  Sender: FDA-Public Use
  Company Number: ES-ABBOTT-12P-144-0957338-00

PATIENT
  Age: 23 Year
  Sex: Male

DRUGS (4)
  1. 3,4-METHYLENEDIOXYMETHAMPHETAMINE [Interacting]
     Indication: PRODUCT USED FOR UNKNOWN INDICATION
     Dosage: TWO TABLETS OF ECSTASY, SEPARATED BY 3 H, AT A NIGHTCLUB PARTY
  2. RITONAVIR [Suspect]
     Indication: PRODUCT USED FOR UNKNOWN INDICATION
     Dosage: 100 MG DAILY
  3. EMTRICITABINE/TENOFOVIR DISOPROXIL FUMARATE [Concomitant]
     Indication: PRODUCT USED FOR UNKNOWN INDICATION
     Dosage: 300/200 MG/DAY
  4. ATAZANAVIR [Concomitant]
     Indication: PRODUCT USED FOR UNKNOWN INDICATION
     Dosage: 300 MG DAILY

REACTIONS (15)
  - VISION BLURRED [None]
  - DISSEMINATED INTRAVASCULAR COAGULATION [None]
  - HYPERTHERMIA [None]
  - HEPATIC FUNCTION ABNORMAL [None]
  - VOMITING [None]
  - COMA SCALE ABNORMAL [None]
  - RENAL FAILURE [None]
  - CONVULSION [None]
  - TOXICITY TO VARIOUS AGENTS [None]
  - DEPRESSED LEVEL OF CONSCIOUSNESS [None]
  - RHABDOMYOLYSIS [None]
  - MALAISE [None]
  - DRUG LEVEL INCREASED [None]
  - DRUG INTERACTION [None]
  - DIZZINESS [None]
